FAERS Safety Report 11808216 (Version 2)
Quarter: 2016Q1

REPORT INFORMATION
  Report Type: Spontaneous
  Country: US (occurrence: US)
  Receive Date: 20151207
  Receipt Date: 20160112
  Transmission Date: 20160525
  Serious: Yes (Other)
  Sender: FDA-Public Use
  Company Number: US-MEDTRONIC-1045135

PATIENT
  Sex: Male

DRUGS (20)
  1. FENTANYL. [Suspect]
     Active Substance: FENTANYL
     Route: 037
  2. MIRALAX [Suspect]
     Active Substance: POLYETHYLENE GLYCOL 3350
     Route: 048
  3. MOVANTIK [Suspect]
     Active Substance: NALOXEGOL OXALATE
     Route: 048
  4. VALIUM [Suspect]
     Active Substance: DIAZEPAM
     Route: 048
  5. FENOFIBRATE. [Suspect]
     Active Substance: FENOFIBRATE
     Route: 048
  6. NEXIUM [Suspect]
     Active Substance: ESOMEPRAZOLE MAGNESIUM
     Route: 048
  7. MORPHINE SULFATE INJECTION [Suspect]
     Active Substance: MORPHINE SULFATE
  8. OXYCONTIN [Suspect]
     Active Substance: OXYCODONE HYDROCHLORIDE
     Route: 048
  9. LYRICA [Suspect]
     Active Substance: PREGABALIN
     Route: 048
  10. ANDROGEL [Suspect]
     Active Substance: TESTOSTERONE
     Route: 061
  11. CYMBALTA [Suspect]
     Active Substance: DULOXETINE HYDROCHLORIDE
     Route: 048
  12. LIDODERM 5 [Suspect]
     Active Substance: LIDOCAINE
     Route: 061
  13. ROXICODONE [Suspect]
     Active Substance: OXYCODONE HYDROCHLORIDE
     Route: 048
  14. LEVOTHYROXINE SODIUM. [Suspect]
     Active Substance: LEVOTHYROXINE SODIUM
     Route: 048
  15. FLOMAX [Suspect]
     Active Substance: TAMSULOSIN HYDROCHLORIDE
  16. BUPIVACAINE HYDROCHLORIDE. [Suspect]
     Active Substance: BUPIVACAINE HYDROCHLORIDE
     Route: 037
  17. AMBIEN [Suspect]
     Active Substance: ZOLPIDEM TARTRATE
     Route: 048
  18. BACLOFEN INTRATHECAL [Suspect]
     Active Substance: BACLOFEN
     Route: 037
  19. ROBAXIN [Suspect]
     Active Substance: METHOCARBAMOL
     Route: 048
  20. HYDROMORPHONE HYDROCHLORIDE. [Suspect]
     Active Substance: HYDROMORPHONE HYDROCHLORIDE
     Route: 037

REACTIONS (47)
  - Sleep apnoea syndrome [Unknown]
  - Asthenia [Unknown]
  - Infusion site mass [Unknown]
  - Hypothyroidism [Unknown]
  - Initial insomnia [Unknown]
  - Lethargy [Unknown]
  - Productive cough [Unknown]
  - Hypersomnia [Unknown]
  - Spinal column stenosis [Unknown]
  - Wheezing [Unknown]
  - Benign prostatic hyperplasia [Unknown]
  - Joint range of motion decreased [Unknown]
  - Cough [Unknown]
  - Lumbar radiculopathy [Unknown]
  - Abdominal hernia [Unknown]
  - Decreased appetite [Unknown]
  - Anaemia [Unknown]
  - Anxiety [Unknown]
  - Depression [Unknown]
  - Discomfort [Unknown]
  - Hyperlipidaemia [Unknown]
  - Hypoxia [Unknown]
  - Muscle spasticity [Unknown]
  - Liver disorder [Unknown]
  - Urinary retention [Unknown]
  - Back pain [Unknown]
  - Myofascial pain syndrome [Unknown]
  - Muscle tightness [Unknown]
  - Neuralgia [Unknown]
  - Oedema [Unknown]
  - Increased appetite [Unknown]
  - Movement disorder [Unknown]
  - Obesity [Unknown]
  - Decreased interest [Unknown]
  - Gastrooesophageal reflux disease [Unknown]
  - Pain [Unknown]
  - Post laminectomy syndrome [Unknown]
  - Radiculopathy [Unknown]
  - Fatigue [Unknown]
  - Cellulitis [Unknown]
  - Insomnia [Unknown]
  - Rales [Unknown]
  - Restlessness [Unknown]
  - Muscle spasms [Unknown]
  - Performance status decreased [Unknown]
  - Paraesthesia [Unknown]
  - Slow speech [Unknown]
